FAERS Safety Report 10254597 (Version 1)
Quarter: 2014Q2

REPORT INFORMATION
  Report Type: Report from Study
  Country: IT (occurrence: IT)
  Receive Date: 20140624
  Receipt Date: 20140624
  Transmission Date: 20141212
  Serious: Yes (Hospitalization)
  Sender: FDA-Public Use
  Company Number: PHHY2014IT076242

PATIENT
  Age: 69 Year
  Sex: Male
  Weight: 81 kg

DRUGS (5)
  1. CERTICAN [Suspect]
     Indication: HEART TRANSPLANT
     Dosage: 0.50 MG, QD
     Route: 048
     Dates: start: 20061104
  2. CERTICAN [Suspect]
     Indication: IMMUNOSUPPRESSION
     Dosage: 0.50 MG, BID
     Route: 048
  3. CICLOSPORIN [Suspect]
     Indication: HEART TRANSPLANT
     Dosage: 25 MG, BID
     Route: 048
     Dates: start: 20061104
  4. CICLOSPORIN [Suspect]
     Indication: IMMUNOSUPPRESSION
     Dosage: 75 MG, (25 + 50 MG)
     Route: 048
  5. SELEPARINA [Concomitant]
     Indication: PROPHYLAXIS
     Dosage: 2850 IU, UNK
     Dates: start: 20091028, end: 20100115

REACTIONS (3)
  - Colon adenoma [Recovered/Resolved]
  - Colon dysplasia [Recovered/Resolved]
  - Pulmonary embolism [Recovered/Resolved with Sequelae]
